FAERS Safety Report 6372126-7 (Version None)
Quarter: 2009Q3

REPORT INFORMATION
  Report Type: 
  Country: None (occurrence: None)
  Receive Date: 20090917
  Receipt Date: 20090907
  Transmission Date: 20100115
  Serious: Yes (Other)
  Sender: FDA-Public Use
  Company Number: B0593105A

PATIENT
  Age: 14 Year
  Sex: Male

DRUGS (1)
  1. ZINACEF [Suspect]
     Dosage: ORAL
     Route: 048

REACTIONS (2)
  - PEMPHIGUS [None]
  - PHARYNGITIS BACTERIAL [None]
